FAERS Safety Report 8339858-2 (Version None)
Quarter: 2012Q2

REPORT INFORMATION
  Report Type: 
  Country: None (occurrence: None)
  Receive Date: 20120507
  Receipt Date: 20120424
  Transmission Date: 20120825
  Serious: Yes (Other)
  Sender: FDA-Public Use
  Company Number: US-PFIZER INC-2012103718

PATIENT
  Sex: Female

DRUGS (1)
  1. SPIRONOLACTONE [Suspect]
     Dosage: 25 MG, DAILY
     Dates: start: 20070101

REACTIONS (5)
  - BLOOD POTASSIUM DECREASED [None]
  - HERPES ZOSTER [None]
  - FLUID RETENTION [None]
  - OSTEONECROSIS [None]
  - OEDEMA PERIPHERAL [None]
